FAERS Safety Report 7529234-4 (Version None)
Quarter: 2011Q2

REPORT INFORMATION
  Report Type: 
  Country: None (occurrence: None)
  Receive Date: 20110607
  Receipt Date: 20110527
  Transmission Date: 20111010
  Serious: Yes (Hospitalization)
  Sender: FDA-Public Use
  Company Number: FR-JNJFOC-2006145516

PATIENT
  Age: 17 Year
  Sex: Female

DRUGS (11)
  1. PSEUDOEPHEDRINE HCL [Suspect]
     Route: 048
  2. ACETAMINOPHEN [Suspect]
     Route: 048
  3. XANAX [Suspect]
     Indication: INTENTIONAL OVERDOSE
     Dosage: DAILY DOSE QTY: 2.5 G
     Route: 048
     Dates: start: 20061015, end: 20061015
  4. METRONIDAZOLE [Suspect]
     Indication: INTENTIONAL OVERDOSE
     Route: 048
     Dates: start: 20061015, end: 20061015
  5. PSEUDOEPHEDRINE HCL [Suspect]
     Indication: INTENTIONAL OVERDOSE
     Route: 048
     Dates: start: 20061015, end: 20061015
  6. ACETAMINOPHEN [Suspect]
     Indication: INTENTIONAL OVERDOSE
     Route: 048
     Dates: start: 20061015, end: 20061015
  7. ACECLOFENAC [Suspect]
     Indication: INTENTIONAL OVERDOSE
     Route: 048
     Dates: start: 20061015, end: 20061015
  8. IBUPROFEN [Suspect]
     Route: 048
  9. IBUPROFEN [Suspect]
     Indication: INTENTIONAL OVERDOSE
     Route: 048
     Dates: start: 20061015, end: 20061015
  10. DICLOFENAC SODIUM [Suspect]
     Indication: INTENTIONAL OVERDOSE
     Route: 048
     Dates: start: 20061015, end: 20061015
  11. CHLOROQUINE PHOSPHATE [Suspect]
     Indication: INTENTIONAL OVERDOSE
     Route: 048
     Dates: start: 20061015, end: 20061015

REACTIONS (6)
  - INTENTIONAL OVERDOSE [None]
  - PALLOR [None]
  - NAUSEA [None]
  - ASTHENIA [None]
  - VOMITING [None]
  - DIARRHOEA [None]
